FAERS Safety Report 17507556 (Version 1)
Quarter: 2020Q1

REPORT INFORMATION
  Report Type: Spontaneous
  Country: FR (occurrence: FR)
  Receive Date: 20200306
  Receipt Date: 20200306
  Transmission Date: 20200409
  Serious: Yes (Other)
  Sender: FDA-Public Use
  Company Number: FR-AUROBINDO-AUR-APL-2020-010900

PATIENT
  Age: 61 Year
  Sex: Male
  Weight: 94 kg

DRUGS (3)
  1. GEMCITABINE. [Suspect]
     Active Substance: GEMCITABINE
     Indication: HEPATOCELLULAR CARCINOMA
     Dosage: UNK ,1 CYCLICAL (1 G/M2 ON DAY 1, FOUR CYCLES, REPEATED EVERY 2 WK)
     Route: 065
  2. SORAFENIB [Suspect]
     Active Substance: SORAFENIB
     Indication: HEPATOCELLULAR CARCINOMA
     Dosage: 800 MILLIGRAM, ONCE A DAY (400 MG, 2X/DAY)
     Route: 065
  3. OXALIPLATIN. [Suspect]
     Active Substance: OXALIPLATIN
     Indication: HEPATOCELLULAR CARCINOMA
     Dosage: 100 MILLIGRAM/SQ. METER, CYCLICAL
     Route: 065

REACTIONS (6)
  - Thrombocytopenia [Unknown]
  - Product use in unapproved indication [Unknown]
  - Neurotoxicity [Unknown]
  - Asthenia [Unknown]
  - Off label use [Unknown]
  - Diarrhoea [Unknown]
